FAERS Safety Report 7241721-5 (Version None)
Quarter: 2011Q1

REPORT INFORMATION
  Report Type: 
  Country: None (occurrence: None)
  Receive Date: 20110124
  Receipt Date: 20110118
  Transmission Date: 20110831
  Serious: Yes (Life-Threatening, Hospitalization, Other)
  Sender: FDA-Public Use
  Company Number: PHHY2011FR03860

PATIENT
  Sex: Female

DRUGS (7)
  1. LOXEN [Concomitant]
     Dosage: 50 MG DAILY
  2. EXELON [Suspect]
     Indication: DEMENTIA ALZHEIMER'S TYPE
     Dosage: 6 MG DAILY
     Route: 048
     Dates: end: 20100527
  3. ATENOLOL [Suspect]
     Dosage: 50 MG DAILY
     Dates: end: 20100527
  4. LASIX [Concomitant]
  5. CORDARONE [Suspect]
     Dosage: UNK
     Dates: end: 20100527
  6. COUMADIN [Concomitant]
     Dosage: 2 MG DAILY
  7. TRINITRIN [Concomitant]
     Route: 062

REACTIONS (11)
  - POST PROCEDURAL HYPOTHYROIDISM [None]
  - INFECTION [None]
  - HYPOKALAEMIA [None]
  - HYPOXIA [None]
  - WEIGHT DECREASED [None]
  - BRADYCARDIA [None]
  - FALL [None]
  - UNRESPONSIVE TO STIMULI [None]
  - TORSADE DE POINTES [None]
  - LOSS OF CONSCIOUSNESS [None]
  - GENERAL PHYSICAL HEALTH DETERIORATION [None]
